FAERS Safety Report 9783725 (Version 1)
Quarter: 2013Q4

REPORT INFORMATION
  Report Type: Spontaneous
  Country: US (occurrence: None)
  Receive Date: 20131223
  Receipt Date: 20131223
  Transmission Date: 20140711
  Serious: Yes (Hospitalization)
  Sender: FDA-Public Use
  Company Number: EUS-2011-00756

PATIENT
  Age: 7 Year
  Sex: Male

DRUGS (4)
  1. ERWINASE (ASPARAGINASE) [Suspect]
     Indication: ACUTE LYMPHOCYTIC LEUKAEMIA
     Dates: end: 20110907
  2. DEXAMETHASONE (DEXAMETHASONE) [Concomitant]
  3. COTRIMOXAZOLE (BACTRIM) [Concomitant]
  4. RANITIDINE (RANITIDINE) [Concomitant]

REACTIONS (1)
  - Hypersensitivity [None]
